FAERS Safety Report 5143297-5 (Version None)
Quarter: 2006Q4

REPORT INFORMATION
  Report Type: 
  Country: None (occurrence: None)
  Receive Date: 20061103
  Receipt Date: 20051207
  Transmission Date: 20070319
  Serious: Yes (Life-Threatening, Hospitalization)
  Sender: FDA-Public Use
  Company Number: 2005AP06371

PATIENT
  Age: 17573 Day
  Sex: Male
  Weight: 73 kg

DRUGS (13)
  1. CRESTOR [Suspect]
     Indication: HYPERCHOLESTEROLAEMIA
     Route: 048
     Dates: start: 20050906, end: 20051114
  2. WARFARIN SODIUM [Suspect]
     Indication: EMBOLISM
     Route: 048
     Dates: start: 20030325, end: 20051114
  3. DORNER [Concomitant]
     Indication: ATRIAL FIBRILLATION
     Route: 048
     Dates: start: 20041019, end: 20051114
  4. GOSHA-JINKI-GAN [Concomitant]
     Route: 048
  5. ACARDI [Concomitant]
     Indication: CARDIAC FAILURE CHRONIC
     Route: 048
     Dates: start: 20040720, end: 20051114
  6. BASEN [Concomitant]
     Indication: DIABETES MELLITUS
     Route: 048
     Dates: start: 20040304, end: 20051114
  7. ARTIST [Concomitant]
     Indication: CARDIAC FAILURE
     Route: 048
     Dates: start: 20030325
  8. MICARDIS [Concomitant]
     Indication: HYPERTENSION
     Route: 048
     Dates: start: 20050402, end: 20051114
  9. ALDACTONE [Concomitant]
     Indication: CARDIAC FAILURE CHRONIC
     Route: 048
     Dates: start: 20030325
  10. LASIX [Concomitant]
     Indication: CARDIAC FAILURE CHRONIC
     Route: 048
     Dates: start: 20030325
  11. ALLOPURINOL [Concomitant]
     Indication: HYPERURICAEMIA
     Route: 048
     Dates: start: 20030916
  12. EURODIN [Concomitant]
     Indication: INSOMNIA
     Route: 048
     Dates: start: 20050402, end: 20051114
  13. BEPRICOR [Concomitant]
     Indication: ATRIAL FIBRILLATION
     Route: 048
     Dates: start: 20030930

REACTIONS (5)
  - ANAEMIA [None]
  - BLOOD CREATINE PHOSPHOKINASE INCREASED [None]
  - GASTRIC ULCER HAEMORRHAGE [None]
  - INTERNATIONAL NORMALISED RATIO INCREASED [None]
  - LIVER DISORDER [None]
